FAERS Safety Report 12472967 (Version 3)
Quarter: 2016Q3

REPORT INFORMATION
  Report Type: Spontaneous
  Country: JP (occurrence: JP)
  Receive Date: 20160616
  Receipt Date: 20160712
  Transmission Date: 20161109
  Serious: Yes (Other)
  Sender: FDA-Public Use
  Company Number: JP-BAYER-2016-112182

PATIENT
  Age: 74 Year
  Sex: Male
  Weight: 57.5 kg

DRUGS (2)
  1. WARFARIN [Concomitant]
     Active Substance: WARFARIN
     Dosage: 0.5 DF, OM
     Route: 048
  2. STIVARGA [Suspect]
     Active Substance: REGORAFENIB
     Indication: RECTAL CANCER
     Dosage: 80 MG, QD, ON FOR 3 WEEKS AND OFF FOR 1 WEEK
     Route: 048
     Dates: start: 20160421, end: 20160622

REACTIONS (1)
  - Dementia with Lewy bodies [Not Recovered/Not Resolved]

NARRATIVE: CASE EVENT DATE: 20160502
